FAERS Safety Report 8352520-5 (Version None)
Quarter: 2012Q2

REPORT INFORMATION
  Report Type: 
  Country: None (occurrence: None)
  Receive Date: 20120511
  Receipt Date: 20120508
  Transmission Date: 20120825
  Serious: Yes (Hospitalization)
  Sender: FDA-Public Use
  Company Number: PHEH2012US008891

PATIENT
  Sex: Female

DRUGS (7)
  1. NEURONTIN [Concomitant]
     Dosage: 300 MG, Q8H AS NEEDED
  2. NEXIUM [Concomitant]
     Dosage: 40 MG, QD
     Route: 048
  3. KLONOPIN [Concomitant]
     Dosage: 0.5 MG, BID AS NEEDED
     Route: 048
  4. GILENYA [Suspect]
     Indication: MULTIPLE SCLEROSIS
     Dosage: 0.5 MG, QD
     Route: 048
     Dates: start: 20120424
  5. TRAZODONE HCL [Concomitant]
     Dosage: 300 MG, QHS
     Route: 048
  6. FIORINAL [Concomitant]
  7. CELEXA [Concomitant]
     Dosage: 40 MG, QD
     Route: 048

REACTIONS (11)
  - DIZZINESS [None]
  - FATIGUE [None]
  - BLOOD PRESSURE INCREASED [None]
  - DYSARTHRIA [None]
  - HEADACHE [None]
  - SINUS BRADYCARDIA [None]
  - HEART RATE DECREASED [None]
  - ELECTROCARDIOGRAM T WAVE INVERSION [None]
  - SOMNOLENCE [None]
  - VISION BLURRED [None]
  - ABNORMAL SENSATION IN EYE [None]
